FAERS Safety Report 6866250-X (Version None)
Quarter: 2010Q3

REPORT INFORMATION
  Report Type: 
  Country: None (occurrence: None)
  Receive Date: 20100722
  Receipt Date: 20100714
  Transmission Date: 20110219
  Serious: Yes (Death, Hospitalization)
  Sender: FDA-Public Use
  Company Number: IT-BAYER-201019715GPV

PATIENT
  Sex: Female

DRUGS (1)
  1. ACETYLSALICYLIC ACID [Suspect]
     Indication: PRODUCT USED FOR UNKNOWN INDICATION
     Dosage: TOTAL DAILY DOSE: 100 MG  UNIT DOSE: 100 MG
     Route: 065
     Dates: start: 20090101

REACTIONS (7)
  - CEREBRAL HAEMORRHAGE [None]
  - DYSPNOEA [None]
  - HEMIPLEGIA [None]
  - LOSS OF CONSCIOUSNESS [None]
  - PYREXIA [None]
  - TACHYPNOEA [None]
  - VOMITING [None]
